FAERS Safety Report 21147644 (Version 1)
Quarter: 2022Q3

REPORT INFORMATION
  Report Type: Spontaneous
  Country: US (occurrence: None)
  Receive Date: 20220729
  Receipt Date: 20220729
  Transmission Date: 20221026
  Serious: Yes (Hospitalization)
  Sender: FDA-Public Use
  Company Number: None

PATIENT
  Age: 75 Year
  Sex: Male

DRUGS (1)
  1. RISPERIDONE [Suspect]
     Active Substance: RISPERIDONE
     Indication: Agitation
     Dates: start: 20220708, end: 20220718

REACTIONS (5)
  - Agitation [None]
  - Akathisia [None]
  - Therapy cessation [None]
  - Extrapyramidal disorder [None]
  - Restlessness [None]

NARRATIVE: CASE EVENT DATE: 20220724
